FAERS Safety Report 23837342 (Version 1)
Quarter: 2024Q2

REPORT INFORMATION
  Report Type: Other
  Country: JP (occurrence: JP)
  Receive Date: 20240509
  Receipt Date: 20240509
  Transmission Date: 20240715
  Serious: Yes (Hospitalization, Other)
  Sender: FDA-Public Use
  Company Number: JP-Bion-013005

PATIENT
  Age: 72 Year
  Sex: Male

DRUGS (4)
  1. DEXAMETHASONE [Suspect]
     Active Substance: DEXAMETHASONE
     Indication: Prostate cancer
     Route: 042
  2. PALONOSETRON [Concomitant]
     Active Substance: PALONOSETRON
     Indication: Vomiting
     Route: 042
  3. FOSAPREPITANT [Concomitant]
     Active Substance: FOSAPREPITANT
     Indication: Vomiting
  4. OXYCODONE [Concomitant]
     Active Substance: OXYCODONE\OXYCODONE HYDROCHLORIDE
     Indication: Pain
     Dosage: 108 MG/DAY

REACTIONS (3)
  - Respiratory depression [Recovered/Resolved]
  - Sedation complication [Recovered/Resolved]
  - Drug interaction [Unknown]
